FAERS Safety Report 5948707-9 (Version None)
Quarter: 2008Q4

REPORT INFORMATION
  Report Type: 
  Country: None (occurrence: None)
  Receive Date: 20081111
  Receipt Date: 20081006
  Transmission Date: 20090506
  Serious: Yes (Hospitalization)
  Sender: FDA-Public Use
  Company Number: FR-JNJFOC-20081001328

PATIENT
  Sex: Male
  Weight: 85 kg

DRUGS (15)
  1. KETODERM [Suspect]
     Route: 003
  2. KETODERM [Suspect]
     Indication: TINEA VERSICOLOUR
     Dosage: A FIRST WASH OF 5 MIN FOLLOWING BY A RINSING
     Route: 003
  3. ZESTRIL [Suspect]
     Route: 048
  4. ZESTRIL [Suspect]
     Indication: DRUG USE FOR UNKNOWN INDICATION
     Route: 048
  5. CORTANCYL [Concomitant]
  6. FOSAMAX [Concomitant]
  7. CALCIUM D3 [Concomitant]
  8. MOPRAL [Concomitant]
  9. SEREVENT [Concomitant]
     Route: 055
  10. BECOTIDE [Concomitant]
     Route: 055
  11. BECONASE [Concomitant]
     Dosage: 2 UNITS
  12. TAHOR [Concomitant]
  13. PREVISCAN [Concomitant]
  14. NON FRACTIONATED HEPARIN [Concomitant]
  15. DYSALFA [Concomitant]
     Indication: DYSURIA

REACTIONS (4)
  - DIARRHOEA [None]
  - HYPOVOLAEMIC SHOCK [None]
  - HYPOXIA [None]
  - VOMITING [None]
